FAERS Safety Report 20841287 (Version 1)
Quarter: 2022Q2

REPORT INFORMATION
  Report Type: Report from Study
  Country: GR (occurrence: GR)
  Receive Date: 20220517
  Receipt Date: 20220517
  Transmission Date: 20220721
  Serious: Yes (Other)
  Sender: FDA-Public Use
  Company Number: GR-ABBVIE-22K-066-4397450-00

PATIENT
  Age: 77 Year
  Sex: Male
  Weight: 99 kg

DRUGS (3)
  1. CARBIDOPA\LEVODOPA [Suspect]
     Active Substance: CARBIDOPA\LEVODOPA
     Indication: Parkinson^s disease
     Dosage: MORNING DOSE: 13.0ML; CONTINUOUS RATE:  2.3ML/H; EXTRA DOSE: 1.3ML
     Route: 050
     Dates: start: 20180605
  2. CARBIDOPA\LEVODOPA [Suspect]
     Active Substance: CARBIDOPA\LEVODOPA
  3. PRAMIPEXOLE [Concomitant]
     Active Substance: PRAMIPEXOLE
     Indication: Parkinson^s disease
     Dosage: 0.18 MG (MORNING)  - 0.18 MG (NOON)  - 0.36 MG (NIGHT)/ FORM STRENGTH: 0.18 MG
     Route: 048

REACTIONS (2)
  - Atrioventricular block complete [Not Recovered/Not Resolved]
  - Hallucination [Not Recovered/Not Resolved]
